FAERS Safety Report 11716579 (Version 2)
Quarter: 2015Q4

REPORT INFORMATION
  Report Type: Spontaneous
  Country: US (occurrence: US)
  Receive Date: 20151104
  Receipt Date: 20151110
  Transmission Date: 20160304
  Serious: No
  Sender: FDA-Public Use
  Company Number: US-ELI_LILLY_AND_COMPANY-US201102006371

PATIENT
  Age: 76 Year
  Sex: Female

DRUGS (6)
  1. HORMONES [Concomitant]
     Active Substance: UNSPECIFIED INGREDIENT
  2. FORTEO [Suspect]
     Active Substance: TERIPARATIDE
     Dosage: 20 UG, QD
  3. FORTEO [Suspect]
     Active Substance: TERIPARATIDE
     Dosage: 20 UG, QD
  4. FORTEO [Suspect]
     Active Substance: TERIPARATIDE
     Indication: OSTEOPOROSIS
     Dosage: 20 UG, QD
     Dates: start: 20110118
  5. FORTEO [Suspect]
     Active Substance: TERIPARATIDE
     Dosage: 20 UG, QD
  6. FORTEO [Suspect]
     Active Substance: TERIPARATIDE
     Dosage: 20 UG, QD

REACTIONS (14)
  - Back pain [Recovered/Resolved]
  - Fall [Recovered/Resolved]
  - Drug dose omission [Recovered/Resolved]
  - Urticaria [Unknown]
  - Uterine haemorrhage [Recovered/Resolved]
  - Blood pressure increased [Unknown]
  - Pain [Unknown]
  - Nausea [Unknown]
  - Drug dose omission [Unknown]
  - Injury [Recovered/Resolved]
  - Respiratory disorder [Recovered/Resolved]
  - Uterine cervical erosion [Unknown]
  - Chest injury [Recovered/Resolved]
  - Pollakiuria [Unknown]

NARRATIVE: CASE EVENT DATE: 20110205
